FAERS Safety Report 5357216-X (Version None)
Quarter: 2007Q2

REPORT INFORMATION
  Report Type: 
  Country: None (occurrence: None)
  Receive Date: 20070612
  Receipt Date: 20070612
  Transmission Date: 20071010
  Serious: Yes (Other)
  Sender: FDA-Public Use
  Company Number: None

PATIENT
  Sex: Female
  Weight: 53.5244 kg

DRUGS (1)
  1. AVELOX [Suspect]
     Indication: PYELONEPHRITIS
     Dosage: 400 MG ONCE PER DAY PO
     Route: 048
     Dates: start: 20070503, end: 20070513

REACTIONS (1)
  - TENDONITIS [None]
